FAERS Safety Report 10741159 (Version 2)
Quarter: 2015Q2

REPORT INFORMATION
  Report Type: Spontaneous
  Country: US (occurrence: US)
  Receive Date: 20150127
  Receipt Date: 20150406
  Transmission Date: 20150821
  Serious: Yes (Death, Hospitalization, Other)
  Sender: FDA-Public Use
  Company Number: US-SA-2015SA007278

PATIENT
  Age: 40 Year
  Sex: Male

DRUGS (7)
  1. K-TAB [Concomitant]
     Active Substance: POTASSIUM CHLORIDE
  2. ALDACTONE [Concomitant]
     Active Substance: SPIRONOLACTONE
  3. LETAIRIS [Suspect]
     Active Substance: AMBRISENTAN
     Indication: PULMONARY HYPERTENSION
     Route: 048
     Dates: end: 2014
  4. DILTIAZEM [Concomitant]
     Active Substance: DILTIAZEM
  5. LANOXIN [Concomitant]
     Active Substance: DIGOXIN
  6. LASIX [Suspect]
     Active Substance: FUROSEMIDE
     Indication: PRODUCT USED FOR UNKNOWN INDICATION
     Route: 065
     Dates: end: 201412
  7. REMODULIN [Suspect]
     Active Substance: TREPROSTINIL
     Indication: PRODUCT USED FOR UNKNOWN INDICATION
     Route: 065
     Dates: end: 201412

REACTIONS (6)
  - Pulmonary arterial hypertension [Unknown]
  - Condition aggravated [Unknown]
  - Acute respiratory failure [Fatal]
  - Pneumonia [Unknown]
  - Ventricular fibrillation [Unknown]
  - Cardiac failure congestive [Unknown]

NARRATIVE: CASE EVENT DATE: 2014
